FAERS Safety Report 14794689 (Version 2)
Quarter: 2018Q2

REPORT INFORMATION
  Report Type: Spontaneous
  Country: AU (occurrence: AU)
  Receive Date: 20180423
  Receipt Date: 20180509
  Transmission Date: 20180711
  Serious: Yes (Other)
  Sender: FDA-Public Use
  Company Number: AU-PFIZER INC-2018157463

PATIENT
  Age: 65 Year
  Sex: Female

DRUGS (10)
  1. ENTRIP [Concomitant]
     Dosage: 10 MG, DAILY, AT NIGHT
  2. XELJANZ [Suspect]
     Active Substance: TOFACITINIB CITRATE
     Indication: RHEUMATOID ARTHRITIS
     Dosage: 5 MG, TWICE DAILY
     Dates: start: 201705
  3. EUTROXSIG [Concomitant]
     Active Substance: LEVOTHYROXINE SODIUM
     Dosage: 100 UG, X1 DAILY IN THE MORNING
  4. ADEFIN [Concomitant]
     Dosage: 20 MG, TWICE DAILY
  5. LIPIDIL [Concomitant]
     Active Substance: FENOFIBRATE
     Dosage: 145 MG, ONCE DAILY
  6. MEGAFOL [Concomitant]
     Active Substance: FOLIC ACID
     Dosage: 1 G, DAILY
  7. NEXAZOLE [Concomitant]
     Dosage: 40 MG, ONCE DAILY
  8. SYMBICORT [Concomitant]
     Active Substance: BUDESONIDE\FORMOTEROL FUMARATE DIHYDRATE
     Dosage: 2 PUFFS BY MOUTH TWICE DAILY
  9. METHOBLASTIN /00113801/ [Concomitant]
     Active Substance: METHOTREXATE
     Dosage: 10 MG, WEEKLY ON TUESDAYS
  10. PROXEN /00256201/ [Concomitant]
     Active Substance: NAPROXEN
     Dosage: 1000 MG, DAILY, AT NIGHT

REACTIONS (1)
  - Meniscus injury [Unknown]
